FAERS Safety Report 19111554 (Version 2)
Quarter: 2021Q2

REPORT INFORMATION
  Report Type: Spontaneous
  Country: US (occurrence: US)
  Receive Date: 20210408
  Receipt Date: 20210610
  Transmission Date: 20210717
  Serious: No
  Sender: FDA-Public Use
  Company Number: US-MYLANLABS-2021M1016535

PATIENT
  Age: 49 Year
  Sex: Female
  Weight: 52 kg

DRUGS (3)
  1. ESTRADIOL TRANSDERMAL SYSTEM [Suspect]
     Active Substance: ESTRADIOL
     Dosage: 0.1 MILLIGRAM, QD (TWICE WEEKLY), 2 PATCHES AT A TIME, CHANGING TWICE WEEK
     Route: 062
     Dates: start: 20210309
  2. ESTRADIOL TRANSDERMAL SYSTEM [Suspect]
     Active Substance: ESTRADIOL
     Indication: HORMONE REPLACEMENT THERAPY
     Dosage: 0.1 MILLIGRAM, QD (TWICE WEEKLY), 2 PATCHES AT A TIME, CHANGING TWICE WEEK
     Route: 062
  3. ESTRADIOL TRANSDERMAL SYSTEM [Suspect]
     Active Substance: ESTRADIOL
     Dosage: 0.1 MILLIGRAM, QD (TWICE WEEKLY), 1 PATCH TWICE A WEEK
     Route: 062

REACTIONS (12)
  - Decreased appetite [Unknown]
  - Malaise [Recovering/Resolving]
  - Migraine [Recovering/Resolving]
  - Therapeutic product effect increased [Not Recovered/Not Resolved]
  - Emotional disorder [Recovering/Resolving]
  - Fatigue [Recovering/Resolving]
  - Nausea [Unknown]
  - Lethargy [Unknown]
  - Anxiety [Recovering/Resolving]
  - Feeling abnormal [Unknown]
  - Agitation [Recovering/Resolving]
  - Headache [Recovering/Resolving]

NARRATIVE: CASE EVENT DATE: 20210309
